FAERS Safety Report 8077399-0 (Version None)
Quarter: 2012Q1

REPORT INFORMATION
  Report Type: 
  Country: None (occurrence: None)
  Receive Date: 20120126
  Receipt Date: 20120126
  Transmission Date: 20120608
  Serious: No
  Sender: FDA-Public Use
  Company Number: None

PATIENT
  Age: 74 Year
  Sex: Male
  Weight: 98.5 kg

DRUGS (1)
  1. DABIGATRAN [Suspect]
     Indication: ATRIAL FIBRILLATION
     Dosage: 150 MG EVERY DAY PO
     Route: 048

REACTIONS (4)
  - NAUSEA [None]
  - ANGINA PECTORIS [None]
  - DYSPEPSIA [None]
  - VOMITING [None]
